FAERS Safety Report 14651410 (Version 1)
Quarter: 2018Q1

REPORT INFORMATION
  Report Type: Spontaneous
  Country: US (occurrence: US)
  Receive Date: 20180316
  Receipt Date: 20180316
  Transmission Date: 20180509
  Serious: Yes (Other)
  Sender: FDA-Public Use
  Company Number: None

PATIENT
  Age: 53 Year
  Sex: Female
  Weight: 55 kg

DRUGS (1)
  1. CIPROFLOXACIN. [Suspect]
     Active Substance: CIPROFLOXACIN
     Indication: COLITIS
     Route: 048
     Dates: start: 20180208, end: 20180218

REACTIONS (8)
  - Corneal opacity [None]
  - Arthralgia [None]
  - Tendonitis [None]
  - Uveitis [None]
  - Visual impairment [None]
  - Back pain [None]
  - Vision blurred [None]
  - Colour blindness [None]

NARRATIVE: CASE EVENT DATE: 20180226
